FAERS Safety Report 18784431 (Version 1)
Quarter: 2021Q1

REPORT INFORMATION
  Report Type: Spontaneous
  Country: US (occurrence: US)
  Receive Date: 20210125
  Receipt Date: 20210125
  Transmission Date: 20210419
  Serious: Yes (Other)
  Sender: FDA-Public Use
  Company Number: US-ROCHE-2523828

PATIENT
  Age: 67 Year
  Sex: Male
  Weight: 78.09 kg

DRUGS (5)
  1. RITUXAN [Suspect]
     Active Substance: RITUXIMAB
     Indication: DIFFUSE LARGE B-CELL LYMPHOMA
  2. TAMSULOSIN [Concomitant]
     Active Substance: TAMSULOSIN
     Dates: start: 202001
  3. RITUXAN [Suspect]
     Active Substance: RITUXIMAB
     Indication: B-CELL LYMPHOMA
     Route: 042
     Dates: start: 20191211, end: 20191212
  4. RITUXAN HYCELA [Suspect]
     Active Substance: HYALURONIDASE (HUMAN RECOMBINANT)\RITUXIMAB
     Indication: DIFFUSE LARGE B-CELL LYMPHOMA
  5. RITUXAN HYCELA [Suspect]
     Active Substance: HYALURONIDASE (HUMAN RECOMBINANT)\RITUXIMAB
     Indication: B-CELL LYMPHOMA
     Route: 058
     Dates: start: 20200106

REACTIONS (4)
  - Pollakiuria [Not Recovered/Not Resolved]
  - Intestinal obstruction [Not Recovered/Not Resolved]
  - Abdominal distension [Not Recovered/Not Resolved]
  - Constipation [Unknown]

NARRATIVE: CASE EVENT DATE: 202001
